FAERS Safety Report 19890668 (Version 8)
Quarter: 2022Q1

REPORT INFORMATION
  Report Type: Report from Study
  Country: US (occurrence: US)
  Receive Date: 20210928
  Receipt Date: 20220314
  Transmission Date: 20220423
  Serious: Yes (Other)
  Sender: FDA-Public Use
  Company Number: US-GLAXOSMITHKLINE-US2021199734

PATIENT
  Age: 38 Year
  Sex: Male

DRUGS (5)
  1. NIRAPARIB [Suspect]
     Active Substance: NIRAPARIB
     Indication: Malignant melanoma
     Dosage: 300 MG, QD
     Route: 048
     Dates: start: 20210917, end: 20211007
  2. NIRAPARIB [Suspect]
     Active Substance: NIRAPARIB
     Dosage: 200 MG, QD
     Route: 048
     Dates: start: 20211014, end: 20211111
  3. NIRAPARIB [Suspect]
     Active Substance: NIRAPARIB
     Dosage: 200 MG, QD
     Dates: start: 20211118
  4. NIRAPARIB [Suspect]
     Active Substance: NIRAPARIB
     Dosage: 200 MG, QD
     Route: 048
  5. ONDANSETRON [Concomitant]
     Active Substance: ONDANSETRON
     Indication: Product used for unknown indication
     Dosage: 8 MG (PRN)

REACTIONS (17)
  - Loss of consciousness [Recovered/Resolved]
  - Syncope [Recovered/Resolved]
  - Headache [Recovered/Resolved]
  - Eye pain [Recovered/Resolved]
  - Flatulence [Recovered/Resolved]
  - Asthenia [Recovered/Resolved]
  - Somnolence [Recovering/Resolving]
  - Nausea [Recovered/Resolved]
  - Taste disorder [Recovered/Resolved]
  - Constipation [Recovered/Resolved]
  - Libido decreased [Not Recovered/Not Resolved]
  - Orchidectomy [Not Recovered/Not Resolved]
  - Full blood count abnormal [Recovered/Resolved]
  - Hypertension [Recovered/Resolved]
  - Skin hypopigmentation [Not Recovered/Not Resolved]
  - Product dose omission in error [Recovered/Resolved]
  - Off label use [Not Recovered/Not Resolved]

NARRATIVE: CASE EVENT DATE: 20210901
